FAERS Safety Report 4490358-X (Version None)
Quarter: 2004Q4

REPORT INFORMATION
  Report Type: 
  Country: None (occurrence: None)
  Receive Date: 20041028
  Receipt Date: 20041014
  Transmission Date: 20050328
  Serious: Yes (Hospitalization)
  Sender: FDA-Public Use
  Company Number: EMR64300001-5

PATIENT
  Age: 65 Year
  Sex: Female

DRUGS (5)
  1. NIASPAN [Suspect]
     Indication: DYSLIPIDAEMIA
     Dosage: 1500 MG QD PO
     Route: 048
     Dates: start: 20040816
  2. HYDROMORPHONE HYDROCHLORIDE [Suspect]
     Indication: PAIN
     Dosage: 4 MG BID PO
     Route: 048
     Dates: start: 20040701, end: 20040906
  3. RAMIPRIL [Concomitant]
  4. BISOPROL [Concomitant]
  5. HYDROMORPHONE HYDROCHLORIDE [Concomitant]

REACTIONS (7)
  - ANGINA PECTORIS [None]
  - CONDITION AGGRAVATED [None]
  - DRUG WITHDRAWAL SYNDROME [None]
  - FLUSHING [None]
  - GOITRE [None]
  - HYPERTENSION [None]
  - HYPERTHYROIDISM [None]
